FAERS Safety Report 22163280 (Version 1)
Quarter: 2023Q2

REPORT INFORMATION
  Report Type: Spontaneous
  Country: US (occurrence: US)
  Receive Date: 20230401
  Receipt Date: 20230401
  Transmission Date: 20230722
  Serious: Yes (Death)
  Sender: FDA-Public Use
  Company Number: US-AUROBINDO-AUR-APL-2022-052476

PATIENT
  Age: 81 Year
  Sex: Female
  Weight: 41 kg

DRUGS (2)
  1. SEVELAMER CARBONATE [Interacting]
     Active Substance: SEVELAMER CARBONATE
     Indication: Dialysis
     Dosage: 3 TIMES A DAY WITH MEALS
     Route: 065
     Dates: start: 201705
  2. LEVOTHYROXINE [Interacting]
     Active Substance: LEVOTHYROXINE
     Indication: Product used for unknown indication
     Dosage: UNK
     Route: 065

REACTIONS (2)
  - Drug interaction [Fatal]
  - Product label issue [Unknown]
